FAERS Safety Report 14137610 (Version 1)
Quarter: 2017Q4

REPORT INFORMATION
  Report Type: Spontaneous
  Country: AU (occurrence: AU)
  Receive Date: 20171027
  Receipt Date: 20171027
  Transmission Date: 20180321
  Serious: Yes (Other)
  Sender: FDA-Public Use
  Company Number: AU-009507513-1710AUS008112

PATIENT
  Age: 47 Year
  Sex: Female

DRUGS (1)
  1. IMPLANON [Suspect]
     Active Substance: ETONOGESTREL
     Dosage: 1 IMPLANT ,UNK
     Dates: start: 201606

REACTIONS (5)
  - Vaginal haemorrhage [Unknown]
  - Weight decreased [Unknown]
  - Abscess limb [Unknown]
  - Vaginal haemorrhage [Unknown]
  - Complication associated with device [Unknown]

NARRATIVE: CASE EVENT DATE: 201607
